FAERS Safety Report 25484967 (Version 1)
Quarter: 2025Q2

REPORT INFORMATION
  Report Type: Spontaneous
  Country: ES (occurrence: ES)
  Receive Date: 20250626
  Receipt Date: 20250626
  Transmission Date: 20250716
  Serious: Yes (Other)
  Sender: RANBAXY
  Company Number: ES-SUN PHARMACEUTICAL INDUSTRIES LTD-2025RR-513704

PATIENT
  Age: 39 Year
  Sex: Male

DRUGS (14)
  1. GABAPENTIN [Suspect]
     Active Substance: GABAPENTIN
     Indication: Analgesic therapy
     Route: 048
  2. PAZOPANIB [Suspect]
     Active Substance: PAZOPANIB
     Indication: Acute myeloid leukaemia
     Route: 065
  3. CLONAZEPAM [Suspect]
     Active Substance: CLONAZEPAM
     Indication: Analgesic therapy
     Route: 048
  4. METHADONE [Suspect]
     Active Substance: METHADONE HYDROCHLORIDE
     Indication: Analgesic therapy
     Route: 048
  5. LIDOCAINE [Suspect]
     Active Substance: LIDOCAINE
     Indication: Analgesic therapy
     Route: 061
  6. MORPHINE [Suspect]
     Active Substance: MORPHINE
     Indication: Analgesic therapy
     Route: 048
  7. MORPHINE [Suspect]
     Active Substance: MORPHINE
     Dosage: 4.4 MILLIGRAM, DAILY, A MIXTURE OF MORPHINE, BUPIVACAINE, ZICONOTIDE
     Route: 040
  8. MORPHINE [Suspect]
     Active Substance: MORPHINE
     Route: 040
  9. METAMIZOLE [Suspect]
     Active Substance: METAMIZOLE
     Indication: Analgesic therapy
     Route: 048
  10. BUPIVACAINE [Suspect]
     Active Substance: BUPIVACAINE
     Indication: Analgesic therapy
     Dosage: 5.11 MILLIGRAM, DAILY
     Route: 040
  11. BUPIVACAINE [Suspect]
     Active Substance: BUPIVACAINE
     Route: 040
  12. VANCOMYCIN [Suspect]
     Active Substance: VANCOMYCIN
     Route: 065
  13. ZICONOTIDE [Suspect]
     Active Substance: ZICONOTIDE
     Indication: Analgesic therapy
     Dosage: 0.826 MICROGRAM, DAILY
     Route: 040
  14. ZICONOTIDE [Suspect]
     Active Substance: ZICONOTIDE
     Route: 040

REACTIONS (4)
  - Drug hypersensitivity [Unknown]
  - Disease progression [Recovering/Resolving]
  - Drug ineffective [Recovering/Resolving]
  - Therapeutic product effect incomplete [Recovering/Resolving]

NARRATIVE: CASE EVENT DATE: 20240101
